FAERS Safety Report 7603132-X (Version None)
Quarter: 2011Q3

REPORT INFORMATION
  Report Type: 
  Country: None (occurrence: None)
  Receive Date: 20110712
  Receipt Date: 20110630
  Transmission Date: 20111222
  Serious: Yes (Hospitalization, Other)
  Sender: FDA-Public Use
  Company Number: CA-ELI_LILLY_AND_COMPANY-CA201106009038

PATIENT
  Sex: Male

DRUGS (13)
  1. ZYPREXA [Suspect]
     Dosage: 5 MG, EACH EVENING
  2. ZYPREXA [Suspect]
     Dosage: 2.5 MG, QD
  3. CLONAZEPAM [Concomitant]
  4. TRAZODONE HCL [Concomitant]
  5. DESIPRAMIDE HCL [Concomitant]
  6. ZYPREXA [Suspect]
     Dosage: 7.5 MG, QD
  7. BUPROPION HCL [Concomitant]
  8. EFFEXOR [Concomitant]
  9. MELLARIL [Concomitant]
  10. LUVOX [Concomitant]
  11. ZYPREXA [Suspect]
     Indication: BIPOLAR DISORDER
     Dosage: 5 MG, UNKNOWN
  12. ZYPREXA [Suspect]
     Dosage: 10 MG, EACH EVENING
  13. VALPROATE SODIUM [Concomitant]

REACTIONS (17)
  - INTRACRANIAL ANEURYSM [None]
  - HYPERTENSION [None]
  - BLOOD CHOLESTEROL INCREASED [None]
  - LYMPHOMA [None]
  - MYOCARDIAL INFARCTION [None]
  - VISUAL ACUITY REDUCED [None]
  - RENAL CYST [None]
  - PLEUROPERICARDITIS [None]
  - TYPE 2 DIABETES MELLITUS [None]
  - POSTOPERATIVE WOUND INFECTION [None]
  - WEIGHT INCREASED [None]
  - DIABETES MELLITUS [None]
  - BLOOD TRIGLYCERIDES INCREASED [None]
  - CARDIAC TAMPONADE [None]
  - OSTEONECROSIS [None]
  - HEPATIC STEATOSIS [None]
  - SLEEP APNOEA SYNDROME [None]
